FAERS Safety Report 6450686-5 (Version None)
Quarter: 2009Q4

REPORT INFORMATION
  Report Type: 
  Country: None (occurrence: None)
  Receive Date: 20091123
  Receipt Date: 20091110
  Transmission Date: 20100525
  Serious: Yes (Hospitalization, Other)
  Sender: FDA-Public Use
  Company Number: US-ELI_LILLY_AND_COMPANY-US200911002817

PATIENT
  Sex: Female

DRUGS (18)
  1. FORTEO [Suspect]
     Dosage: 20 UG, DAILY (1/D)
     Dates: start: 20090801
  2. SYNTHROID [Concomitant]
     Dosage: 100 UG, DAILY (1/D)
  3. NEXIUM [Concomitant]
     Dosage: 40 MG, UNK
  4. BENICAR [Concomitant]
     Dosage: 10 MG, 2/D
  5. BUMEX [Concomitant]
     Dosage: 1 MG, DAILY (1/D)
  6. POTASSIUM CHLORIDE [Concomitant]
     Dosage: 10 MEQ, DAILY (1/D)
  7. LEXAPRO [Concomitant]
     Dosage: 10 MG, 2/D
  8. LYRICA [Concomitant]
     Indication: FIBROMYALGIA
  9. TRAMADOL HCL [Concomitant]
     Dosage: 100 MG, 4/D
  10. TYLENOL (CAPLET) [Concomitant]
     Dosage: 1000 MG, 4/D
  11. VITAMIN D3 [Concomitant]
     Dosage: 10000 U, 2/W
  12. CALCIUM [Concomitant]
     Dosage: 1250 MG, 2/D
  13. SENNA LAXATIVE [Concomitant]
  14. STOOL SOFTENER [Concomitant]
  15. ADVAIR DISKUS 100/50 [Concomitant]
     Dosage: UNK, 2/D
     Route: 055
  16. DUONEB [Concomitant]
  17. XOPENEX [Concomitant]
     Dosage: UNK, AS NEEDED
  18. OXYCODONE HCL [Concomitant]
     Dosage: 10 MG, 4/D

REACTIONS (5)
  - DYSPHONIA [None]
  - JOINT STIFFNESS [None]
  - KNEE ARTHROPLASTY [None]
  - MUSCULOSKELETAL STIFFNESS [None]
  - SINUSITIS [None]
